FAERS Safety Report 4427741-4 (Version None)
Quarter: 2004Q3

REPORT INFORMATION
  Report Type: 
  Country: None (occurrence: None)
  Receive Date: 20040817
  Receipt Date: 20040720
  Transmission Date: 20050211
  Serious: Yes (Hospitalization)
  Sender: FDA-Public Use
  Company Number: FR-GLAXOSMITHKLINE-B0329687C

PATIENT
  Age: 42 Year
  Sex: Male
  Weight: 60 kg

DRUGS (4)
  1. LEXIVA [Suspect]
     Indication: HIV INFECTION
     Route: 048
     Dates: start: 20011026
  2. RITONAVIR [Suspect]
     Indication: HIV INFECTION
     Route: 048
     Dates: start: 20011026
  3. ABACAVIR [Concomitant]
     Indication: HIV INFECTION
     Dosage: 300MG TWICE PER DAY
     Route: 048
     Dates: start: 20011026
  4. DIDANOSINE [Concomitant]
     Indication: HIV INFECTION
     Dosage: 400MG PER DAY
     Route: 048
     Dates: start: 20011026

REACTIONS (18)
  - ABNORMAL CHEST SOUND [None]
  - ANXIETY [None]
  - ASTHENIA [None]
  - CLONUS [None]
  - COUGH [None]
  - DEPRESSION [None]
  - FEELING GUILTY [None]
  - HEADACHE [None]
  - INFLUENZA [None]
  - IRRITABILITY [None]
  - JOINT CONTRACTURE [None]
  - LEUKOCYTOSIS [None]
  - LUNG DISORDER [None]
  - MAJOR DEPRESSION [None]
  - MUTISM [None]
  - PYREXIA [None]
  - RALES [None]
  - SOCIAL PROBLEM [None]
